FAERS Safety Report 5719484-1 (Version None)
Quarter: 2008Q2

REPORT INFORMATION
  Report Type: 
  Country: None (occurrence: None)
  Receive Date: 20080428
  Receipt Date: 20080428
  Transmission Date: 20081010
  Serious: Yes (Death, Hospitalization)
  Sender: FDA-Public Use
  Company Number: None

PATIENT
  Sex: Male
  Weight: 113.3993 kg

DRUGS (1)
  1. HEPARIN [Suspect]

REACTIONS (8)
  - BLOOD DISORDER [None]
  - BLOOD PRESSURE DECREASED [None]
  - BRAIN INJURY [None]
  - DIALYSIS [None]
  - DYSPNOEA [None]
  - HAEMORRHAGE [None]
  - INFECTION [None]
  - RENAL FAILURE [None]
